FAERS Safety Report 5703851-6 (Version None)
Quarter: 2008Q2

REPORT INFORMATION
  Report Type: 
  Country: None (occurrence: None)
  Receive Date: 20080414
  Receipt Date: 20080307
  Transmission Date: 20081010
  Serious: Yes (Death, Life-Threatening)
  Sender: FDA-Public Use
  Company Number: KR-BAYER-200815768GPV

PATIENT

DRUGS (4)
  1. ALEMTUZUMAB [Suspect]
     Indication: APLASTIC ANAEMIA
     Route: 042
  2. CIPROFLOXACIN [Concomitant]
     Indication: INFECTION PROPHYLAXIS
     Route: 065
  3. ACYCLOVIR [Concomitant]
     Indication: INFECTION PROPHYLAXIS
     Route: 065
  4. BACTRIM [Concomitant]
     Indication: INFECTION PROPHYLAXIS
     Route: 065

REACTIONS (6)
  - CEREBRAL HAEMORRHAGE [None]
  - HEPATIC ENZYME INCREASED [None]
  - PANCYTOPENIA [None]
  - PYREXIA [None]
  - RASH [None]
  - THROMBOCYTOPENIA [None]
